FAERS Safety Report 25178515 (Version 2)
Quarter: 2025Q2

REPORT INFORMATION
  Report Type: Spontaneous
  Country: FR (occurrence: FR)
  Receive Date: 20250409
  Receipt Date: 20250417
  Transmission Date: 20250717
  Serious: Yes (Hospitalization, Other)
  Sender: BOEHRINGER INGELHEIM
  Company Number: FR-GSK-FR2025EME006238

PATIENT
  Age: 46 Year
  Sex: Female
  Weight: 59 kg

DRUGS (34)
  1. PRAMIPEXOLE [Suspect]
     Active Substance: PRAMIPEXOLE
     Indication: Product used for unknown indication
  2. PRAMIPEXOLE [Suspect]
     Active Substance: PRAMIPEXOLE
  3. REQUIP [Suspect]
     Active Substance: ROPINIROLE HYDROCHLORIDE
     Indication: Parkinson^s disease
     Dates: start: 20200210
  4. REQUIP [Suspect]
     Active Substance: ROPINIROLE HYDROCHLORIDE
  5. REQUIP [Suspect]
     Active Substance: ROPINIROLE HYDROCHLORIDE
  6. REQUIP [Suspect]
     Active Substance: ROPINIROLE HYDROCHLORIDE
     Dates: start: 20200911, end: 202311
  7. REQUIP [Suspect]
     Active Substance: ROPINIROLE HYDROCHLORIDE
     Dosage: 1 MORNING
  8. REQUIP [Suspect]
     Active Substance: ROPINIROLE HYDROCHLORIDE
  9. LAMICTAL [Suspect]
     Active Substance: LAMOTRIGINE
     Indication: Product used for unknown indication
  10. LAMICTAL [Suspect]
     Active Substance: LAMOTRIGINE
  11. AZILECT [Suspect]
     Active Substance: RASAGILINE MESYLATE
     Indication: Parkinson^s disease
     Dates: start: 20191022, end: 202504
  12. AZILECT [Suspect]
     Active Substance: RASAGILINE MESYLATE
     Indication: Behaviour disorder
  13. RASAGILINE [Suspect]
     Active Substance: RASAGILINE
     Indication: Parkinson^s disease
     Dosage: UNK UNK,1 MORNING
  14. RASAGILINE [Suspect]
     Active Substance: RASAGILINE
     Dosage: 1 MG, QD
  15. RASAGILINE [Suspect]
     Active Substance: RASAGILINE
     Dosage: 1 MORNING
  16. RASAGILINE [Suspect]
     Active Substance: RASAGILINE
  17. KETOPROFEN [Suspect]
     Active Substance: KETOPROFEN
     Indication: Product used for unknown indication
  18. KETOPROFEN [Suspect]
     Active Substance: KETOPROFEN
  19. ROPINIROLE [Suspect]
     Active Substance: ROPINIROLE
     Indication: Parkinson^s disease
     Dosage: UNK UNK, QD,1 MORNING
  20. ROPINIROLE [Suspect]
     Active Substance: ROPINIROLE
  21. ROPINIROLE [Suspect]
     Active Substance: ROPINIROLE
     Dosage: 8 MG, QD
  22. ROPINIROLE [Suspect]
     Active Substance: ROPINIROLE
     Dosage: 1 MORNING
  23. ROPINIROLE [Suspect]
     Active Substance: ROPINIROLE
  24. ROPINIROLE [Suspect]
     Active Substance: ROPINIROLE
     Dosage: 8 MG, QD
  25. SINEMET [Suspect]
     Active Substance: CARBIDOPA\LEVODOPA
     Indication: Tremor
  26. SINEMET [Suspect]
     Active Substance: CARBIDOPA\LEVODOPA
  27. SINEMET [Suspect]
     Active Substance: CARBIDOPA\LEVODOPA
     Dosage: UNK UNK, TID CURRENTLY (T TAB 3 TIMES)
  28. SINEMET [Suspect]
     Active Substance: CARBIDOPA\LEVODOPA
  29. SINEMET [Suspect]
     Active Substance: CARBIDOPA\LEVODOPA
  30. SINEMET [Suspect]
     Active Substance: CARBIDOPA\LEVODOPA
  31. SINEMET [Suspect]
     Active Substance: CARBIDOPA\LEVODOPA
     Dosage: UNK UNK, TID CURRENTLY (T TAB 3 TIMES)
  32. SINEMET [Suspect]
     Active Substance: CARBIDOPA\LEVODOPA
  33. ALPRAZOLAM [Suspect]
     Active Substance: ALPRAZOLAM
     Indication: Product used for unknown indication
  34. ZOPICLONE [Suspect]
     Active Substance: ZOPICLONE
     Indication: Product used for unknown indication

REACTIONS (37)
  - Depression [Unknown]
  - Akinesia [Unknown]
  - Suicidal ideation [Unknown]
  - Behaviour disorder [Recovered/Resolved]
  - Adverse drug reaction [Unknown]
  - Pain in extremity [Unknown]
  - Tremor [Unknown]
  - Pruritus [Unknown]
  - Alopecia [Unknown]
  - Hyposmia [Unknown]
  - Fatigue [Unknown]
  - Restless legs syndrome [Unknown]
  - Back pain [Unknown]
  - Paraesthesia [Unknown]
  - Lordosis [Unknown]
  - Osteoarthritis [Unknown]
  - Urinary incontinence [Unknown]
  - Disturbance in attention [Unknown]
  - Orthostatic intolerance [Unknown]
  - Memory impairment [Unknown]
  - Lack of spontaneous speech [Unknown]
  - Gastrointestinal hypermotility [Unknown]
  - Attention deficit hyperactivity disorder [Unknown]
  - Fine motor skill dysfunction [Unknown]
  - Mixed anxiety and depressive disorder [Unknown]
  - Weight increased [Unknown]
  - Libido increased [Unknown]
  - Hypersexuality [Unknown]
  - Eating disorder [Unknown]
  - Gambling disorder [Unknown]
  - Insomnia [Unknown]
  - Injury [Unknown]
  - Mental disorder [Unknown]
  - Disturbance in attention [Unknown]
  - Poor quality sleep [Unknown]
  - Depressed mood [Unknown]
  - Depressive symptom [Unknown]
